FAERS Safety Report 12880969 (Version 1)
Quarter: 2016Q4

REPORT INFORMATION
  Report Type: Spontaneous
  Country: US (occurrence: US)
  Receive Date: 20161025
  Receipt Date: 20161025
  Transmission Date: 20170207
  Serious: Yes (Hospitalization)
  Sender: FDA-Public Use
  Company Number: None

PATIENT
  Age: 68 Year
  Sex: Male
  Weight: 94.9 kg

DRUGS (6)
  1. IODINATED CONTRAST DYE [Suspect]
     Active Substance: IODINE
     Indication: PERIPHERAL ARTERY BYPASS
     Route: 042
  2. APIXIBAN [Concomitant]
     Active Substance: APIXABAN
  3. CARDENE [Concomitant]
     Active Substance: NICARDIPINE HYDROCHLORIDE
  4. COREG [Concomitant]
     Active Substance: CARVEDILOL
  5. DIOVAN [Concomitant]
     Active Substance: VALSARTAN
  6. PLAVIX [Concomitant]
     Active Substance: CLOPIDOGREL BISULFATE

REACTIONS (2)
  - Contrast media reaction [None]
  - Hypersensitivity [None]

NARRATIVE: CASE EVENT DATE: 20151021
